FAERS Safety Report 12194833 (Version 1)
Quarter: 2016Q1

REPORT INFORMATION
  Report Type: Spontaneous
  Country: RU (occurrence: RU)
  Receive Date: 20160321
  Receipt Date: 20160321
  Transmission Date: 20160526
  Serious: Yes (Other)
  Sender: FDA-Public Use
  Company Number: RU-GLAXOSMITHKLINE-RU2015GSK178562

PATIENT
  Sex: Female

DRUGS (5)
  1. ABACAVIR. [Suspect]
     Active Substance: ABACAVIR
     Indication: HIV INFECTION
     Dosage: UNK
     Dates: start: 201509
  2. KALETRA [Suspect]
     Active Substance: LOPINAVIR\RITONAVIR
     Indication: HIV INFECTION
     Dosage: UNK, KALETRAFOR 2.5 MONTHS
     Dates: start: 201509, end: 201512
  3. PREZISTA [Suspect]
     Active Substance: DARUNAVIR ETHANOLATE
     Indication: HIV INFECTION
     Dosage: UNK
     Dates: start: 201512
  4. LAMIVUDINE. [Suspect]
     Active Substance: LAMIVUDINE
     Indication: HIV INFECTION
     Dosage: UNK
     Dates: start: 201509
  5. KIVEXA [Suspect]
     Active Substance: ABACAVIR SULFATE\LAMIVUDINE
     Indication: HIV INFECTION
     Dosage: UNK
     Dates: start: 201509

REACTIONS (13)
  - Mood altered [Unknown]
  - Gardnerella infection [Recovered/Resolved]
  - Endometriosis [Not Recovered/Not Resolved]
  - Abdominal discomfort [Unknown]
  - Chest pain [Not Recovered/Not Resolved]
  - Ureaplasma infection [Recovered/Resolved]
  - Discomfort [Unknown]
  - Hepatic pain [Unknown]
  - Facial wasting [Unknown]
  - Abdominal pain [Unknown]
  - Alopecia [Recovered/Resolved]
  - Abdominal pain lower [Not Recovered/Not Resolved]
  - Ultrasound liver abnormal [Unknown]

NARRATIVE: CASE EVENT DATE: 2015
